APPROVED DRUG PRODUCT: ALAVERT
Active Ingredient: LORATADINE
Strength: 10MG
Dosage Form/Route: TABLET, ORALLY DISINTEGRATING;ORAL
Application: N021375 | Product #001
Applicant: FOUNDATION CONSUMER BRANDS LLC
Approved: Dec 19, 2002 | RLD: No | RS: No | Type: OTC